FAERS Safety Report 8598229-4 (Version None)
Quarter: 2012Q3

REPORT INFORMATION
  Report Type: 
  Country: None (occurrence: None)
  Receive Date: 20120802
  Receipt Date: 20120727
  Transmission Date: 20120928
  Serious: Yes (Hospitalization, Other)
  Sender: FDA-Public Use
  Company Number: 2012PL000098

PATIENT
  Age: 58 Year
  Sex: Female
  Weight: 54.4316 kg

DRUGS (7)
  1. LOTRONEX [Suspect]
     Indication: IRRITABLE BOWEL SYNDROME
     Dosage: 0.5 MG;BID;PO
     Route: 048
     Dates: start: 20110801, end: 20120201
  2. SYNTHROID [Concomitant]
  3. OMEGA-3 FATTY ACIDS [Concomitant]
  4. OSTEO BI-FLEX [Concomitant]
  5. THERAGRAN /00554301/ [Concomitant]
  6. ESTRADIOL [Concomitant]
  7. CALCIUM CARBONATE [Concomitant]

REACTIONS (5)
  - CARBON DIOXIDE INCREASED [None]
  - PLATELET COUNT INCREASED [None]
  - NEUTROPHIL PERCENTAGE INCREASED [None]
  - WHITE BLOOD CELL COUNT INCREASED [None]
  - COLITIS ISCHAEMIC [None]
